FAERS Safety Report 10204673 (Version 1)
Quarter: 2014Q2

REPORT INFORMATION
  Report Type: Spontaneous
  Country: US (occurrence: US)
  Receive Date: 20140529
  Receipt Date: 20140529
  Transmission Date: 20141212
  Serious: Yes (Hospitalization)
  Sender: FDA-Public Use
  Company Number: US-GLAXOSMITHKLINE-A1074205A

PATIENT
  Age: 38 Year
  Sex: Female

DRUGS (6)
  1. VENTOLIN [Suspect]
     Indication: ASTHMA
     Dosage: 2PUFF FOUR TIMES PER DAY
     Route: 055
  2. PROAIR HFA [Suspect]
     Indication: ASTHMA
     Dosage: 2PUFF FOUR TIMES PER DAY
     Route: 065
     Dates: start: 2009
  3. SINGULAIR [Suspect]
     Indication: PRODUCT USED FOR UNKNOWN INDICATION
     Route: 065
  4. HCTZ [Suspect]
     Indication: PRODUCT USED FOR UNKNOWN INDICATION
     Route: 065
  5. INTRAUTERINE DEVICE [Suspect]
     Indication: PRODUCT USED FOR UNKNOWN INDICATION
     Route: 015
  6. ASMANEX [Concomitant]

REACTIONS (22)
  - Peripartum cardiomyopathy [Recovering/Resolving]
  - Pneumonia [Recovering/Resolving]
  - Gestational hypertension [Recovered/Resolved]
  - Malaise [Recovered/Resolved]
  - Bronchitis [Recovering/Resolving]
  - Respiratory tract congestion [Recovering/Resolving]
  - Dyspnoea [Recovering/Resolving]
  - Drug ineffective [Unknown]
  - Lung disorder [Recovering/Resolving]
  - Chest discomfort [Recovering/Resolving]
  - Nasopharyngitis [Recovered/Resolved]
  - Fluid retention [Recovering/Resolving]
  - Abdominal distension [Recovering/Resolving]
  - Abdominal discomfort [Recovering/Resolving]
  - Electrocardiogram change [Recovering/Resolving]
  - Intra-uterine contraceptive device removal [Recovering/Resolving]
  - Weight increased [Recovering/Resolving]
  - Cardiac disorder [Recovering/Resolving]
  - Orthopnoea [Recovering/Resolving]
  - Live birth [Unknown]
  - Exposure during pregnancy [Unknown]
  - Drug administration error [Unknown]
